FAERS Safety Report 19640035 (Version 1)
Quarter: 2021Q3

REPORT INFORMATION
  Report Type: Spontaneous
  Country: US (occurrence: US)
  Receive Date: 20210730
  Receipt Date: 20210730
  Transmission Date: 20211014
  Serious: No
  Sender: FDA-Public Use
  Company Number: US-PFIZER INC-2021137387

PATIENT
  Age: 65 Year
  Sex: Female

DRUGS (1)
  1. LYRICA [Suspect]
     Active Substance: PREGABALIN
     Dosage: 750 MG, DAILY (1 TAB TID (THREE TIMES A DAY) AND TWO TABS AT HS (AT BEDTIME))

REACTIONS (2)
  - Prescribed overdose [Unknown]
  - Hypersensitivity [Unknown]
